FAERS Safety Report 6599833-5 (Version None)
Quarter: 2010Q1

REPORT INFORMATION
  Report Type: 
  Country: None (occurrence: None)
  Receive Date: 20100224
  Receipt Date: 20100217
  Transmission Date: 20100710
  Serious: Yes (Other)
  Sender: FDA-Public Use
  Company Number: US-JNJCH-2009031655

PATIENT
  Age: 1 Year

DRUGS (1)
  1. ASPIRIN [Suspect]
     Indication: DRUG USE FOR UNKNOWN INDICATION
     Dosage: TEXT:UNSPECIFIED 325-MG TABLET (780 MG/KG)
     Route: 048

REACTIONS (2)
  - THERAPEUTIC AGENT TOXICITY [None]
  - WRONG DRUG ADMINISTERED [None]
